FAERS Safety Report 15297222 (Version 1)
Quarter: 2018Q3

REPORT INFORMATION
  Report Type: Spontaneous
  Country: US (occurrence: US)
  Receive Date: 20180807
  Receipt Date: 20180807
  Transmission Date: 20181010
  Serious: Yes (Hospitalization)
  Sender: FDA-Public Use
  Company Number: None

PATIENT
  Age: 72 Year
  Sex: Male

DRUGS (1)
  1. OXYBUTYNIN. [Suspect]
     Active Substance: OXYBUTYNIN CHLORIDE
     Indication: HYPERTONIC BLADDER
     Route: 048
     Dates: start: 20180216, end: 20180329

REACTIONS (4)
  - Hydronephrosis [None]
  - Specific gravity urine decreased [None]
  - Urinary retention [None]
  - Acute kidney injury [None]

NARRATIVE: CASE EVENT DATE: 20180330
